FAERS Safety Report 24546602 (Version 2)
Quarter: 2024Q4

REPORT INFORMATION
  Report Type: Spontaneous
  Country: US (occurrence: US)
  Receive Date: 20241024
  Receipt Date: 20241107
  Transmission Date: 20250114
  Serious: Yes (Death, Life-Threatening, Hospitalization, Other)
  Sender: SANOFI AVENTIS
  Company Number: US-MLMSERVICE-20241015-PI228644-00271-1

PATIENT
  Age: 47 Year
  Sex: Female

DRUGS (7)
  1. PREDNISONE [Suspect]
     Active Substance: PREDNISONE
     Indication: Liver transplant
     Dosage: 10 MG, QD
     Route: 048
  2. ANTI-THYMOCYTE GLOBULIN (RABBIT) NOS [Suspect]
     Active Substance: LAPINE T-LYMPHOCYTE IMMUNE GLOBULIN
     Indication: Transplant rejection
     Dosage: UNK
  3. MYCOPHENOLATE MOFETIL [Suspect]
     Active Substance: MYCOPHENOLATE MOFETIL
     Indication: Liver transplant
     Dosage: 1.5 G, QD
  4. TACROLIMUS [Suspect]
     Active Substance: TACROLIMUS
     Indication: Liver transplant
     Dosage: UNK
  5. METHYLPREDNISOLONE [Suspect]
     Active Substance: METHYLPREDNISOLONE
     Indication: Liver transplant
     Dosage: 1 G, QOD  TOTAL OF 3 DOSES
     Route: 042
  6. RITUXIMAB [Suspect]
     Active Substance: RITUXIMAB
     Indication: Transplant rejection
     Dosage: UNK
  7. HUMAN IMMUNOGLOBULIN G [Suspect]
     Active Substance: HUMAN IMMUNOGLOBULIN G
     Indication: Transplant rejection
     Dosage: 10 % TOTAL OF 6 ROUNDS
     Route: 042

REACTIONS (12)
  - Septic shock [Fatal]
  - Failure to thrive [Fatal]
  - Sepsis [Fatal]
  - Abdominal abscess [Fatal]
  - Multiple organ dysfunction syndrome [Fatal]
  - Spontaneous bacterial peritonitis [Unknown]
  - Disseminated intravascular coagulation [Unknown]
  - Schistocytosis [Unknown]
  - Oesophageal ulcer [Unknown]
  - Klebsiella infection [Unknown]
  - Cytomegalovirus infection [Unknown]
  - Fungal infection [Unknown]
